FAERS Safety Report 4906487-X (Version None)
Quarter: 2006Q1

REPORT INFORMATION
  Report Type: 
  Country: None (occurrence: None)
  Receive Date: 20060209
  Receipt Date: 20050801
  Transmission Date: 20060701
  Serious: Yes (Death, Hospitalization)
  Sender: FDA-Public Use
  Company Number: US-MERCK-0508USA00846

PATIENT
  Age: 90 Year
  Sex: Female
  Weight: 45 kg

DRUGS (10)
  1. VIOXX [Suspect]
     Indication: ARTHRALGIA
     Route: 048
     Dates: start: 20010401, end: 20010401
  2. VIOXX [Suspect]
     Route: 048
     Dates: start: 20001101
  3. ASPIRIN [Concomitant]
     Route: 048
  4. ATENOLOL [Concomitant]
     Route: 048
  5. LOTREL [Concomitant]
     Route: 048
  6. ALLOPURINOL [Concomitant]
     Indication: GOUTY TOPHUS
     Route: 048
  7. LONOX [Concomitant]
     Route: 065
  8. PREMARIN [Concomitant]
     Route: 048
  9. PLETAL [Concomitant]
     Indication: PERIPHERAL VASCULAR DISORDER
     Route: 048
  10. LOMOTIL [Concomitant]
     Indication: DIARRHOEA
     Route: 065

REACTIONS (15)
  - ARTERIOSCLEROSIS [None]
  - CARDIAC MURMUR [None]
  - CEREBROVASCULAR ACCIDENT [None]
  - CHEST PAIN [None]
  - CHONDROCALCINOSIS [None]
  - DEATH [None]
  - DIVERTICULUM INTESTINAL HAEMORRHAGIC [None]
  - DIZZINESS [None]
  - EMOTIONAL DISTRESS [None]
  - FALL [None]
  - HYPERTENSION [None]
  - INJURY [None]
  - OVERDOSE [None]
  - PULMONARY GRANULOMA [None]
  - SKIN LACERATION [None]
